FAERS Safety Report 6290695-2 (Version None)
Quarter: 2009Q3

REPORT INFORMATION
  Report Type: 
  Country: None (occurrence: None)
  Receive Date: 20090730
  Receipt Date: 20090720
  Transmission Date: 20100115
  Serious: Yes (Death, Other)
  Sender: FDA-Public Use
  Company Number: JP-PFIZER INC-2009242973

PATIENT
  Age: 27 Year

DRUGS (3)
  1. PREDNISOLONE AND PREDNISOLONE STEAGLATE [Suspect]
     Indication: AUTOIMMUNE HEPATITIS
     Dosage: 30 MG, UNK
  2. AZATHIOPRINE [Suspect]
     Indication: AUTOIMMUNE HEPATITIS
     Dosage: 50 MG, UNK
  3. CYCLOSPORINE [Suspect]

REACTIONS (2)
  - DRUG RESISTANCE [None]
  - PNEUMOCYSTIS JIROVECI INFECTION [None]
